FAERS Safety Report 17415642 (Version 1)
Quarter: 2020Q1

REPORT INFORMATION
  Report Type: Report from Study
  Country: FR (occurrence: FR)
  Receive Date: 20200213
  Receipt Date: 20200213
  Transmission Date: 20200409
  Serious: Yes (Death, Other)
  Sender: FDA-Public Use
  Company Number: FR-MYLANLABS-2020M1016777

PATIENT
  Age: 58 Year
  Sex: Male
  Weight: 52 kg

DRUGS (8)
  1. VINORELBINE [Suspect]
     Active Substance: VINORELBINE TARTRATE
     Dosage: 25 MG/CYCLE
     Route: 042
     Dates: start: 20180619
  2. DURVALUMAB. [Suspect]
     Active Substance: DURVALUMAB
     Dosage: 550 MILLIGRAM, Q2W
     Route: 042
     Dates: start: 20180823
  3. CISPLATIN. [Suspect]
     Active Substance: CISPLATIN
     Dosage: 136 MG/CYCLE
     Route: 042
     Dates: start: 20180619
  4. DURVALUMAB. [Suspect]
     Active Substance: DURVALUMAB
     Dosage: 520 MILLIGRAM, Q2W
     Route: 042
     Dates: start: 20180920, end: 20181214
  5. DURVALUMAB. [Suspect]
     Active Substance: DURVALUMAB
     Indication: NON-SMALL CELL LUNG CANCER STAGE III
     Dosage: 550 MILLIGRAM, Q2W
     Route: 042
     Dates: start: 20180809
  6. CISPLATIN. [Suspect]
     Active Substance: CISPLATIN
     Indication: NON-SMALL CELL LUNG CANCER STAGE III
     Dosage: 136 MG/CYCLE
     Route: 042
     Dates: start: 20180529, end: 20180530
  7. VINORELBINE [Suspect]
     Active Substance: VINORELBINE TARTRATE
     Indication: NON-SMALL CELL LUNG CANCER STAGE III
     Dosage: 25 MG/CYCLE
     Route: 042
     Dates: start: 20180529, end: 20180530
  8. ONBREZ [Concomitant]
     Active Substance: INDACATEROL
     Indication: CHRONIC OBSTRUCTIVE PULMONARY DISEASE
     Dosage: UNK
     Route: 048

REACTIONS (3)
  - Haemoglobin abnormal [Not Recovered/Not Resolved]
  - Leukopenia [Recovered/Resolved]
  - Neoplasm [Fatal]

NARRATIVE: CASE EVENT DATE: 201808
